FAERS Safety Report 11216443 (Version 1)
Quarter: 2015Q2

REPORT INFORMATION
  Report Type: Spontaneous
  Country: US (occurrence: US)
  Receive Date: 20150624
  Receipt Date: 20150624
  Transmission Date: 20150821
  Serious: No
  Sender: FDA-Public Use
  Company Number: US-GLAXOSMITHKLINE-A1085382A

PATIENT
  Sex: Female

DRUGS (3)
  1. WELLBUTRIN XL [Suspect]
     Active Substance: BUPROPION HYDROCHLORIDE
     Indication: DEPRESSION
     Dosage: 150 MG, U
     Route: 048
     Dates: start: 2013, end: 2014
  2. WELLBUTRIN XL [Suspect]
     Active Substance: BUPROPION HYDROCHLORIDE
     Dosage: 450 MG, QD
     Dates: start: 2015
  3. WELLBUTRIN XL [Suspect]
     Active Substance: BUPROPION HYDROCHLORIDE
     Dosage: 300 MG, QD
     Dates: start: 201501, end: 2015

REACTIONS (12)
  - Impatience [Unknown]
  - Hyperhidrosis [Not Recovered/Not Resolved]
  - Daydreaming [Unknown]
  - Increased appetite [Unknown]
  - Paraesthesia [Unknown]
  - Feeling hot [Not Recovered/Not Resolved]
  - Dizziness [Unknown]
  - Pain [Unknown]
  - Anger [Unknown]
  - Hypoaesthesia [Unknown]
  - Fatigue [Unknown]
  - Apathy [Not Recovered/Not Resolved]

NARRATIVE: CASE EVENT DATE: 2015
